FAERS Safety Report 9027532 (Version 1)
Quarter: 2013Q1

REPORT INFORMATION
  Report Type: Spontaneous
  Country: US (occurrence: US)
  Receive Date: 20130124
  Receipt Date: 20130124
  Transmission Date: 20140127
  Serious: No
  Sender: FDA-Public Use
  Company Number: US-BIOGENIDEC-2013BI004713

PATIENT
  Age: 35 Year
  Sex: Male

DRUGS (1)
  1. TYSABRI [Suspect]
     Indication: MULTIPLE SCLEROSIS
     Route: 042
     Dates: start: 20121002

REACTIONS (7)
  - Throat irritation [Recovered/Resolved]
  - Cough [Recovered/Resolved]
  - Upper respiratory tract congestion [Recovered/Resolved]
  - VIIth nerve paralysis [Not Recovered/Not Resolved]
  - Motor dysfunction [Recovered/Resolved]
  - Multiple sclerosis relapse [Not Recovered/Not Resolved]
  - Lethargy [Recovered/Resolved]
